FAERS Safety Report 9817249 (Version 2)
Quarter: 2014Q1

REPORT INFORMATION
  Report Type: Report from Study
  Country: CA (occurrence: CA)
  Receive Date: 20140115
  Receipt Date: 20140115
  Transmission Date: 20141002
  Serious: Yes (Other)
  Sender: FDA-Public Use
  Company Number: CA-ROCHE-1320850

PATIENT
  Age: 58 Year
  Sex: Female
  Weight: 93 kg

DRUGS (13)
  1. RITUXAN [Suspect]
     Indication: RHEUMATOID ARTHRITIS
     Route: 042
     Dates: start: 20121220
  2. ACETAMINOPHEN [Concomitant]
     Indication: PREMEDICATION
     Route: 048
     Dates: start: 20121220
  3. METHYLPREDNISOLONE [Concomitant]
     Indication: PREMEDICATION
     Route: 042
     Dates: start: 20121220
  4. AMLODIPINE [Concomitant]
  5. MICARDIS PLUS [Concomitant]
  6. PLAVIX [Concomitant]
  7. PREDNISONE [Concomitant]
  8. LEFLUNOMIDE [Concomitant]
  9. SULFASALAZINE [Concomitant]
  10. PLAQUENIL [Concomitant]
  11. METHOTREXATE [Concomitant]
  12. ACTONEL [Concomitant]
  13. VENLAFAXINE [Concomitant]

REACTIONS (7)
  - Dyspnoea [Recovered/Resolved]
  - Dysphagia [Recovered/Resolved]
  - Weight decreased [Unknown]
  - Arthralgia [Unknown]
  - Nasal discomfort [Recovered/Resolved]
  - Lacrimation increased [Recovered/Resolved]
  - Ear pruritus [Recovered/Resolved]
